FAERS Safety Report 8565305-1 (Version None)
Quarter: 2012Q3

REPORT INFORMATION
  Report Type: 
  Country: None (occurrence: None)
  Receive Date: 20120724
  Receipt Date: 20120713
  Transmission Date: 20120928
  Serious: Yes (Death, Hospitalization)
  Sender: FDA-Public Use
  Company Number: DSA_58536_2012

PATIENT
  Age: 86 Year
  Sex: Male

DRUGS (3)
  1. ROVAMYCINE (ROVAMYCINE) (NOT SPECIFIED) [Suspect]
     Indication: LUNG ABSCESS
     Dosage: (DF ORAL)
     Route: 048
     Dates: start: 20120517, end: 20120519
  2. ROCEPHIN [Suspect]
     Indication: LUNG ABSCESS
     Dosage: (1 G, DAILY SUBCUTANEOUS)
     Route: 058
     Dates: start: 20120515, end: 20120519
  3. FLAGYL [Suspect]
     Indication: LUNG ABSCESS
     Dosage: (DF ORAL)
     Route: 048
     Dates: start: 20120515, end: 20120519

REACTIONS (5)
  - PEMPHIGOID [None]
  - ACUTE PULMONARY OEDEMA [None]
  - BRONCHITIS [None]
  - DERMATITIS BULLOUS [None]
  - RENAL FAILURE ACUTE [None]
